FAERS Safety Report 17790379 (Version 1)
Quarter: 2020Q2

REPORT INFORMATION
  Report Type: Report from Study
  Country: US (occurrence: US)
  Receive Date: 20200514
  Receipt Date: 20200514
  Transmission Date: 20200714
  Serious: No
  Sender: FDA-Public Use
  Company Number: NVSC2020US130826

PATIENT
  Age: 71 Year
  Sex: Male
  Weight: 70.31 kg

DRUGS (2)
  1. ENTRESTO [Suspect]
     Active Substance: SACUBITRIL\VALSARTAN
     Indication: RESTRICTIVE CARDIOMYOPATHY
     Dosage: 100 MG, UNKNOWN
     Route: 048
     Dates: start: 20200302
  2. ENTRESTO [Suspect]
     Active Substance: SACUBITRIL\VALSARTAN
     Dosage: 50 MG, BID  (49- 51 MG 1 HALF BID)
     Route: 048

REACTIONS (3)
  - Musculoskeletal chest pain [Recovering/Resolving]
  - Balance disorder [Recovering/Resolving]
  - Visual impairment [Recovering/Resolving]

NARRATIVE: CASE EVENT DATE: 20200428
